FAERS Safety Report 9904419 (Version 3)
Quarter: 2014Q2

REPORT INFORMATION
  Report Type: Spontaneous
  Country: BR (occurrence: BR)
  Receive Date: 20140218
  Receipt Date: 20140430
  Transmission Date: 20141212
  Serious: Yes (Hospitalization, Other)
  Sender: FDA-Public Use
  Company Number: BR-JNJFOC-20140207557

PATIENT
  Age: 61 Year
  Sex: Male

DRUGS (1)
  1. ZYTIGA [Suspect]
     Indication: PROSTATE CANCER
     Route: 048

REACTIONS (6)
  - Dyspnoea [Unknown]
  - Loss of consciousness [Not Recovered/Not Resolved]
  - Pleural effusion [Unknown]
  - Neoplasm malignant [Not Recovered/Not Resolved]
  - Drug dose omission [Unknown]
  - Peripheral swelling [Unknown]
